FAERS Safety Report 23191535 (Version 7)
Quarter: 2024Q1

REPORT INFORMATION
  Report Type: Spontaneous
  Country: AR (occurrence: AR)
  Receive Date: 20231116
  Receipt Date: 20240116
  Transmission Date: 20240410
  Serious: No
  Sender: FDA-Public Use
  Company Number: AR-PFIZER INC-PV202300182575

PATIENT
  Age: 6 Year
  Sex: Female

DRUGS (4)
  1. GENOTROPIN [Suspect]
     Active Substance: SOMATROPIN
     Indication: Prader-Willi syndrome
     Dosage: 0.4 MG, 7 TIMES A WEEK
     Dates: start: 20231023, end: 20231106
  2. GENOTROPIN [Suspect]
     Active Substance: SOMATROPIN
     Dosage: 0.1 TO 0.5 MG, 7 TIMES PER WEEK
     Dates: start: 20231023, end: 20231106
  3. GENOTROPIN [Suspect]
     Active Substance: SOMATROPIN
     Dosage: 0.4 MG, 7 TIMES A WEEK
     Dates: start: 20231117
  4. GENOTROPIN [Suspect]
     Active Substance: SOMATROPIN
     Dosage: 0.4 MG, 7 TIMES A WEEK
     Dates: start: 20231117

REACTIONS (3)
  - Incorrect dose administered by device [Unknown]
  - Drug dose omission by device [Unknown]
  - Device mechanical issue [Unknown]

NARRATIVE: CASE EVENT DATE: 20231104
